FAERS Safety Report 7757379-2 (Version None)
Quarter: 2011Q3

REPORT INFORMATION
  Report Type: 
  Country: None (occurrence: None)
  Receive Date: 20110916
  Receipt Date: 20110912
  Transmission Date: 20111222
  Serious: Yes (Death)
  Sender: FDA-Public Use
  Company Number: TN-SANOFI-AVENTIS-2011SA059907

PATIENT
  Age: 58 Year
  Sex: Female

DRUGS (5)
  1. ASPIRIN [Concomitant]
     Route: 048
     Dates: end: 20110225
  2. PLAVIX [Suspect]
     Indication: ACUTE CORONARY SYNDROME
     Route: 048
     Dates: start: 20100220, end: 20110225
  3. ATORVASTATIN [Concomitant]
     Route: 048
     Dates: end: 20110225
  4. LASIX [Concomitant]
     Route: 048
     Dates: end: 20110225
  5. PLAVIX [Suspect]
     Indication: STENT PLACEMENT
     Route: 048
     Dates: start: 20100220, end: 20110225

REACTIONS (2)
  - ASTHMA [None]
  - DYSPNOEA [None]
